FAERS Safety Report 4368589-9 (Version None)
Quarter: 2004Q2

REPORT INFORMATION
  Report Type: 
  Country: None (occurrence: None)
  Receive Date: 20040602
  Receipt Date: 20040510
  Transmission Date: 20050107
  Serious: Yes (Life-Threatening, Hospitalization)
  Sender: FDA-Public Use
  Company Number: AU-2004-025224

PATIENT
  Age: 53 Year
  Sex: Female
  Weight: 70 kg

DRUGS (3)
  1. ULTRAVIST 370 [Suspect]
     Indication: COMPUTERISED TOMOGRAM
     Dosage: 150 ML, INTRAVENOUS
     Route: 042
     Dates: start: 20040429, end: 20040429
  2. METOPROLOL (METOPROLOL) [Suspect]
     Dosage: 5 MG, INTRAVENOUS
     Route: 042
  3. CORTICOSTEROIDS [Concomitant]

REACTIONS (4)
  - ANAPHYLACTIC SHOCK [None]
  - CARDIAC ARREST [None]
  - NAUSEA [None]
  - VOMITING [None]
